FAERS Safety Report 24839450 (Version 1)
Quarter: 2025Q1

REPORT INFORMATION
  Report Type: Report from Study
  Country: US (occurrence: US)
  Receive Date: 20250114
  Receipt Date: 20250114
  Transmission Date: 20250409
  Serious: Yes (Other)
  Sender: ABBVIE
  Company Number: US-ABBVIE-6077701

PATIENT
  Sex: Female

DRUGS (1)
  1. RINVOQ [Suspect]
     Active Substance: UPADACITINIB
     Indication: Psoriatic arthropathy
     Route: 048
     Dates: start: 20221205

REACTIONS (13)
  - Streptococcal sepsis [Recovering/Resolving]
  - Headache [Unknown]
  - Feeling abnormal [Unknown]
  - Viral infection [Unknown]
  - Chills [Unknown]
  - Nausea [Unknown]
  - Musculoskeletal disorder [Unknown]
  - Gait inability [Unknown]
  - Ulcer [Recovering/Resolving]
  - Tremor [Recovering/Resolving]
  - Immune system disorder [Unknown]
  - Pyrexia [Unknown]
  - Localised infection [Recovering/Resolving]
